FAERS Safety Report 25978555 (Version 1)
Quarter: 2025Q4

REPORT INFORMATION
  Report Type: Spontaneous
  Country: EU (occurrence: EU)
  Receive Date: 20251030
  Receipt Date: 20251030
  Transmission Date: 20260118
  Serious: Yes (Other)
  Sender: CIPLA
  Company Number: EU-CIPLA (EU) LIMITED-2025SK13496

PATIENT

DRUGS (4)
  1. CETIRIZINE [Suspect]
     Active Substance: CETIRIZINE HYDROCHLORIDE
     Indication: Respiratory tract infection
     Dosage: 1/2 TABLET 2X DAILY
     Route: 065
  2. PSEUDOEPHEDRINE HYDROCHLORIDE\TRIPROLIDINE HYDROCHLORIDE [Suspect]
     Active Substance: PSEUDOEPHEDRINE HYDROCHLORIDE\TRIPROLIDINE HYDROCHLORIDE
     Indication: Respiratory tract infection
     Dosage: 5 MILLILITER, TID (5 ML 3X DAILY)
     Route: 065
  3. BUDESONIDE [Suspect]
     Active Substance: BUDESONIDE
     Indication: Respiratory tract infection
     Dosage: 0.2 MILLIGRAM, BID (0.2 MG 2X I)
     Route: 065
  4. AERIUS (DESLORATADINE) [Suspect]
     Active Substance: DESLORATADINE
     Indication: Respiratory tract infection
     Dosage: 2.5 MILLIGRAM, QD ( 2.5 MG LX L)
     Route: 065

REACTIONS (4)
  - Blindness transient [Unknown]
  - Cough [Unknown]
  - Dyspnoea [Unknown]
  - Treatment noncompliance [Unknown]
